FAERS Safety Report 13400818 (Version 1)
Quarter: 2017Q2

REPORT INFORMATION
  Report Type: Spontaneous
  Country: None (occurrence: FR)
  Receive Date: 20170404
  Receipt Date: 20170404
  Transmission Date: 20170830
  Serious: Yes (Other)
  Sender: FDA-Public Use
  Company Number: FR-MERZ NORTH AMERICA, INC.-17MRZ-00113

PATIENT
  Age: 61 Year
  Sex: Female
  Weight: 60 kg

DRUGS (2)
  1. BOTOX [Suspect]
     Active Substance: ONABOTULINUMTOXINA
     Dosage: (1 IN 1 TOTAL)
     Dates: start: 2008
  2. XEOMIN [Suspect]
     Active Substance: INCOBOTULINUMTOXINA
     Indication: SKIN WRINKLING
     Dosage: (8 IU, 1 IN 1 TOTAL)
     Dates: start: 20170117, end: 20170117

REACTIONS (2)
  - Hypersensitivity [Unknown]
  - Injection site oedema [Recovered/Resolved]

NARRATIVE: CASE EVENT DATE: 20170206
